FAERS Safety Report 8959653 (Version 2)
Quarter: 2014Q2

REPORT INFORMATION
  Report Type: Spontaneous
  Country: CA (occurrence: CA)
  Receive Date: 20121212
  Receipt Date: 20131018
  Transmission Date: 20141212
  Serious: Yes (Hospitalization, Other)
  Sender: FDA-Public Use
  Company Number: CA-PFIZER INC-2012311698

PATIENT
  Age: 40 Year
  Sex: Male

DRUGS (7)
  1. MORPHINE SULFATE [Suspect]
     Dosage: UNK
     Route: 065
  2. OXYCONTIN [Suspect]
     Dosage: UNK
     Route: 065
  3. DILAUDID [Suspect]
     Indication: PRODUCT USED FOR UNKNOWN INDICATION
     Dosage: UNK
     Route: 065
  4. MARIJUANA [Suspect]
     Dosage: UNK
     Route: 065
  5. COCAINE [Suspect]
     Dosage: UNK
     Route: 065
  6. LSD [Suspect]
     Dosage: UNK
     Route: 065
  7. AMPHETAMINE [Suspect]
     Dosage: UNK
     Route: 065

REACTIONS (5)
  - Overdose [Unknown]
  - Drug dependence [Unknown]
  - Substance abuse [Unknown]
  - Drug withdrawal syndrome [Unknown]
  - Euphoric mood [Unknown]
